FAERS Safety Report 10101522 (Version 2)
Quarter: 2014Q2

REPORT INFORMATION
  Report Type: Report from Study
  Country: US (occurrence: US)
  Receive Date: 20140424
  Receipt Date: 20140522
  Transmission Date: 20141212
  Serious: Yes (Other)
  Sender: FDA-Public Use
  Company Number: US-SA-2014SA049587

PATIENT
  Age: 29 Year
  Sex: Female

DRUGS (3)
  1. LANTUS [Suspect]
     Indication: DIABETES MELLITUS
     Dosage: DOSE:25 UNIT(S)
     Route: 065
  2. LANTUS [Suspect]
     Indication: DIABETES MELLITUS
     Dosage: TREATMENT START DATE: 10-12 YEARS DOSE:30 UNIT(S)
     Route: 065
     Dates: start: 2003
  3. APIDRA [Suspect]
     Indication: DIABETES MELLITUS
     Dosage: DOSE: 8-10 UNITS
     Route: 065
     Dates: start: 2003

REACTIONS (5)
  - Eye disorder [Unknown]
  - Diabetic retinopathy [Not Recovered/Not Resolved]
  - Renal failure [Not Recovered/Not Resolved]
  - Blood creatinine increased [Not Recovered/Not Resolved]
  - Glomerular filtration rate decreased [Not Recovered/Not Resolved]
